FAERS Safety Report 6132402-X (Version None)
Quarter: 2009Q1

REPORT INFORMATION
  Report Type: 
  Country: None (occurrence: None)
  Receive Date: 20090325
  Receipt Date: 20090313
  Transmission Date: 20090719
  Serious: No
  Sender: FDA-Public Use
  Company Number: US-B.I. PHARMACEUTICALS,INC./RIDGEFIELD-2009-BP-03397BP

PATIENT
  Sex: Female

DRUGS (10)
  1. COMBIVENT [Suspect]
     Indication: CHRONIC OBSTRUCTIVE PULMONARY DISEASE
  2. COMBIVENT [Suspect]
     Indication: BRONCHITIS CHRONIC
  3. COMBIVENT [Suspect]
     Indication: DYSPNOEA
  4. ALBUTEROL SULFATE [Suspect]
     Indication: DYSPNOEA
  5. ALBUTEROL SULFATE [Suspect]
     Indication: CHRONIC OBSTRUCTIVE PULMONARY DISEASE
  6. ALBUTEROL SULFATE [Suspect]
     Indication: BRONCHITIS CHRONIC
  7. SEREVENT [Suspect]
     Indication: DYSPNOEA
  8. SEREVENT [Suspect]
     Indication: CHRONIC OBSTRUCTIVE PULMONARY DISEASE
  9. SEREVENT [Suspect]
     Indication: BRONCHITIS CHRONIC
  10. SPIRIVA [Concomitant]
     Indication: DYSPNOEA

REACTIONS (1)
  - HEART RATE INCREASED [None]
